FAERS Safety Report 6837982-4 (Version None)
Quarter: 2010Q3

REPORT INFORMATION
  Report Type: 
  Country: None (occurrence: None)
  Receive Date: 20100713
  Receipt Date: 20070501
  Transmission Date: 20110219
  Serious: No
  Sender: FDA-Public Use
  Company Number: US-PFIZER INC-2007035119

PATIENT
  Sex: Female
  Weight: 54.43 kg

DRUGS (9)
  1. CHANTIX [Suspect]
     Indication: SMOKING CESSATION THERAPY
     Dates: start: 20070412
  2. LOPID [Concomitant]
  3. FOSAMAX [Concomitant]
  4. ACETYLSALICYLIC ACID [Concomitant]
  5. LORAZEPAM [Concomitant]
  6. KLOR-CON [Concomitant]
  7. NORVASC [Concomitant]
  8. FISH OIL [Concomitant]
  9. OMEGA [Concomitant]

REACTIONS (3)
  - ABDOMINAL PAIN UPPER [None]
  - NAUSEA [None]
  - VOMITING [None]
